FAERS Safety Report 4746625-5 (Version None)
Quarter: 2005Q3

REPORT INFORMATION
  Report Type: 
  Country: None (occurrence: None)
  Receive Date: 20050817
  Receipt Date: 20050727
  Transmission Date: 20060218
  Serious: Yes (Other)
  Sender: FDA-Public Use
  Company Number: 2005SE04349

PATIENT
  Age: 22993 Day
  Sex: Female

DRUGS (6)
  1. BLOPRESS TABLETS 4 [Suspect]
     Indication: HYPERTENSION
     Route: 048
     Dates: start: 20050629, end: 20050716
  2. CARDENALIN [Suspect]
     Indication: HYPERTENSION
     Route: 048
     Dates: start: 20050420, end: 20050426
  3. CARDENALIN [Suspect]
     Route: 048
     Dates: start: 20050427, end: 20050601
  4. CARDENALIN [Suspect]
     Route: 048
     Dates: start: 20050713, end: 20050716
  5. TOWARAT L [Concomitant]
     Indication: HYPERTENSION
     Route: 048
     Dates: end: 20050601
  6. TOWARAT L [Concomitant]
     Route: 048
     Dates: start: 20050706, end: 20050713

REACTIONS (8)
  - BLOOD PRESSURE DIASTOLIC ABNORMAL [None]
  - BLOOD PRESSURE INCREASED [None]
  - FAECAL INCONTINENCE [None]
  - LOSS OF CONSCIOUSNESS [None]
  - PULSE ABSENT [None]
  - SHOCK [None]
  - TREATMENT NONCOMPLIANCE [None]
  - URINARY INCONTINENCE [None]
